FAERS Safety Report 7757846-1 (Version None)
Quarter: 2011Q3

REPORT INFORMATION
  Report Type: 
  Country: None (occurrence: None)
  Receive Date: 20110918
  Receipt Date: 20110906
  Transmission Date: 20111222
  Serious: Yes (Death)
  Sender: FDA-Public Use
  Company Number: US-BRISTOL-MYERS SQUIBB COMPANY-16057598

PATIENT

DRUGS (4)
  1. CARMUSTINE [Suspect]
     Indication: CHEMOTHERAPY
     Dosage: A SINGLE DOSE ON DAY3.
  2. CYCLOPHOSPHAMIDE [Suspect]
     Indication: CHEMOTHERAPY
     Dosage: 1DF:1.8G/SQ.M
     Route: 042
  3. ETOPOPHOS PRESERVATIVE FREE [Suspect]
     Indication: CHEMOTHERAPY
     Dosage: 6 DOSES IN 3 DAYS
  4. PACLITAXEL [Suspect]
     Indication: CHEMOTHERAPY
     Dosage: ADMINISTERED AS 24HR CONTINUOUS INFUSION.
     Route: 042

REACTIONS (1)
  - PSEUDOMONAL SEPSIS [None]
